FAERS Safety Report 13959496 (Version 2)
Quarter: 2018Q1

REPORT INFORMATION
  Report Type: Spontaneous
  Country: US (occurrence: US)
  Receive Date: 20170911
  Receipt Date: 20180131
  Transmission Date: 20180508
  Serious: Yes (Hospitalization, Other)
  Sender: FDA-Public Use
  Company Number: US-DSJP-DSU-2017-135965

PATIENT

DRUGS (2)
  1. BENICAR [Suspect]
     Active Substance: OLMESARTAN MEDOXOMIL
     Indication: HYPERTENSION
     Dosage: 20 MG, QD
     Route: 048
     Dates: start: 20100823
  2. BENICAR HCT [Suspect]
     Active Substance: HYDROCHLOROTHIAZIDE\OLMESARTAN MEDOXOMIL
     Indication: HYPERTENSION
     Dosage: 20/12.5 MG , QD
     Route: 048
     Dates: start: 20100823

REACTIONS (8)
  - Colitis [Recovered/Resolved]
  - Diverticulitis [Unknown]
  - Weight decreased [Unknown]
  - Appendicitis [Recovered/Resolved]
  - Constipation [Unknown]
  - Inflammatory bowel disease [Unknown]
  - Enteritis [Unknown]
  - Coeliac disease [Unknown]

NARRATIVE: CASE EVENT DATE: 20100823
